FAERS Safety Report 5676599-4 (Version None)
Quarter: 2008Q1

REPORT INFORMATION
  Report Type: 
  Country: None (occurrence: None)
  Receive Date: 20080324
  Receipt Date: 20080312
  Transmission Date: 20080703
  Serious: Yes (Other)
  Sender: FDA-Public Use
  Company Number: ES-RANBAXY-2008RR-13766

PATIENT

DRUGS (5)
  1. IBUPROFEN [Suspect]
  2. NEVRALGIN [Suspect]
  3. KETANOV [Suspect]
  4. ACETAMINOPHEN [Concomitant]
     Dosage: 1 G, UNK
     Route: 048
  5. MELOXICAM RANBAXY 7.5MG COMPRIMIDOS EFG [Concomitant]

REACTIONS (1)
  - BRONCHOSPASM [None]
